FAERS Safety Report 6833849-6 (Version None)
Quarter: 2010Q3

REPORT INFORMATION
  Report Type: 
  Country: None (occurrence: None)
  Receive Date: 20100712
  Receipt Date: 20070404
  Transmission Date: 20110219
  Serious: No
  Sender: FDA-Public Use
  Company Number: US-PFIZER INC-2007027850

PATIENT
  Sex: Female
  Weight: 65.77 kg

DRUGS (9)
  1. CHANTIX [Suspect]
     Indication: SMOKING CESSATION THERAPY
     Dates: start: 20070324
  2. ZANTAC [Concomitant]
     Indication: GASTRIC DISORDER
  3. DIAZEPAM [Concomitant]
  4. METHOTREXATE [Concomitant]
     Indication: RHEUMATOID ARTHRITIS
  5. TRAZODONE HYDROCHLORIDE [Concomitant]
     Indication: SLEEP DISORDER
  6. ESTRADIOL [Concomitant]
  7. HYDROCHLOROTHIAZIDE [Concomitant]
  8. CALAN - SLOW RELEASE [Concomitant]
  9. ALL OTHER THERAPEUTIC PRODUCTS [Concomitant]
     Indication: HEADACHE

REACTIONS (6)
  - ABDOMINAL DISTENSION [None]
  - ABNORMAL DREAMS [None]
  - FATIGUE [None]
  - INSOMNIA [None]
  - NAUSEA [None]
  - POLYDIPSIA [None]
